FAERS Safety Report 9208705 (Version 1)
Quarter: 2013Q1

REPORT INFORMATION
  Report Type: Spontaneous
  Country: US (occurrence: None)
  Receive Date: 20120806
  Receipt Date: 20120806
  Transmission Date: 20140127
  Serious: Yes (Other)
  Sender: FDA-Public Use
  Company Number: 2011AT000416

PATIENT
  Age: 59 Year
  Sex: Male

DRUGS (7)
  1. EDEX [Suspect]
     Indication: ERECTILE DYSFUNCTION
     Route: 011
     Dates: start: 201110, end: 20111030
  2. JANUVIA [Concomitant]
  3. METOPROLOL [Concomitant]
  4. ZETIA [Concomitant]
  5. BENAZEPRIL [Concomitant]
  6. METFORMIN [Concomitant]
  7. LIPITOR [Concomitant]

REACTIONS (2)
  - Priapism [None]
  - Penile pain [None]
